FAERS Safety Report 5241440-0 (Version None)
Quarter: 2007Q1

REPORT INFORMATION
  Report Type: 
  Country: None (occurrence: None)
  Receive Date: 20070220
  Receipt Date: 20070209
  Transmission Date: 20070707
  Serious: Yes (Other)
  Sender: FDA-Public Use
  Company Number: FR-AVENTIS-200310765FR

PATIENT
  Age: 82 Year
  Sex: Female
  Weight: 63 kg

DRUGS (8)
  1. KETEK [Suspect]
     Route: 048
     Dates: start: 20030131, end: 20030331
  2. MESTINON [Concomitant]
     Route: 048
  3. CORTICOSTEROIDS [Concomitant]
     Route: 055
  4. IKOREL [Concomitant]
  5. BEFIZAL [Concomitant]
     Route: 048
  6. NISIS [Concomitant]
  7. ALLOPURINOL SODIUM [Concomitant]
  8. TRINIPATCH [Concomitant]

REACTIONS (5)
  - DYSPHAGIA [None]
  - MUSCULAR WEAKNESS [None]
  - RESPIRATORY DISORDER [None]
  - SPEECH DISORDER [None]
  - TONGUE PARALYSIS [None]
